FAERS Safety Report 17295527 (Version 2)
Quarter: 2020Q1

REPORT INFORMATION
  Report Type: Spontaneous
  Country: IL (occurrence: IL)
  Receive Date: 20200121
  Receipt Date: 20200220
  Transmission Date: 20200409
  Serious: Yes (Other)
  Sender: FDA-Public Use
  Company Number: IL-CELLTRION INC.-2020IL017733

PATIENT

DRUGS (3)
  1. REMSIMA [Suspect]
     Active Substance: INFLIXIMAB
     Indication: CROHN^S DISEASE
     Dosage: 400 MG ON WEEK 0
  2. REMSIMA [Suspect]
     Active Substance: INFLIXIMAB
     Dosage: 400 MG ON WEEK 6
     Dates: start: 20200216
  3. REMSIMA [Suspect]
     Active Substance: INFLIXIMAB
     Dosage: 400 MG ON WEEK 2

REACTIONS (7)
  - Pyrexia [Unknown]
  - White blood cell count increased [Unknown]
  - Chills [Unknown]
  - Oropharyngeal pain [Unknown]
  - Pharyngitis [Recovered/Resolved]
  - Streptococcus test positive [Unknown]
  - Malaise [Unknown]
